FAERS Safety Report 8850568 (Version 3)
Quarter: 2013Q3

REPORT INFORMATION
  Report Type: Spontaneous
  Country: US (occurrence: US)
  Receive Date: 20121019
  Receipt Date: 20130716
  Transmission Date: 20140515
  Serious: Yes (Hospitalization, Other)
  Sender: FDA-Public Use
  Company Number: US-009507513-1204USA01067

PATIENT
  Sex: Female
  Weight: 78.46 kg

DRUGS (3)
  1. FOSAMAX [Suspect]
     Indication: OSTEOPOROSIS
     Dosage: 70 MG, UNK
     Route: 048
     Dates: end: 2009
  2. FOSAMAX PLUS D [Suspect]
     Route: 048
  3. ADVAIR [Concomitant]
     Indication: ASTHMA
     Dosage: 2 DF, Q12H
     Dates: start: 2006, end: 2007

REACTIONS (12)
  - Femur fracture [Unknown]
  - Femur fracture [Unknown]
  - Open reduction of fracture [Unknown]
  - Open reduction of fracture [Unknown]
  - Femur fracture [Unknown]
  - Chronic obstructive pulmonary disease [Not Recovered/Not Resolved]
  - Arthritis [Not Recovered/Not Resolved]
  - Rotator cuff syndrome [Unknown]
  - Hypertension [Unknown]
  - Bone erosion [Unknown]
  - Gait disturbance [Recovering/Resolving]
  - Drug ineffective [Unknown]
